FAERS Safety Report 6151208-9 (Version None)
Quarter: 2009Q2

REPORT INFORMATION
  Report Type: 
  Country: None (occurrence: None)
  Receive Date: 20090410
  Receipt Date: 20090403
  Transmission Date: 20091009
  Serious: Yes (Hospitalization)
  Sender: FDA-Public Use
  Company Number: BR-ASTRAZENECA-2009UW08605

PATIENT
  Age: 65 Year
  Sex: Male

DRUGS (1)
  1. CRESTOR [Suspect]
     Indication: MALAISE
     Dosage: DAILY
     Route: 048
     Dates: start: 20090325, end: 20090403

REACTIONS (1)
  - MYOCARDIAL INFARCTION [None]
